FAERS Safety Report 4748976-7 (Version None)
Quarter: 2005Q3

REPORT INFORMATION
  Report Type: 
  Country: None (occurrence: None)
  Receive Date: 20050819
  Receipt Date: 20050510
  Transmission Date: 20060218
  Serious: Yes (Other)
  Sender: FDA-Public Use
  Company Number: US-MERCK-0505USA01530

PATIENT
  Age: 69 Year
  Sex: Female
  Weight: 90 kg

DRUGS (5)
  1. VIOXX [Suspect]
     Route: 048
     Dates: start: 19990101, end: 20020101
  2. NORVASC [Concomitant]
     Indication: HYPERTENSION
     Route: 048
  3. DIOVAN [Concomitant]
     Indication: HYPERTENSION
     Route: 048
  4. LIPITOR [Concomitant]
     Indication: BLOOD CHOLESTEROL INCREASED
     Route: 048
  5. ECOTRIN [Concomitant]
     Route: 048
     Dates: start: 20020101

REACTIONS (2)
  - CEREBROVASCULAR ACCIDENT [None]
  - THROMBOSIS [None]
